FAERS Safety Report 4837175-6 (Version None)
Quarter: 2005Q4

REPORT INFORMATION
  Report Type: 
  Country: None (occurrence: None)
  Receive Date: 20051122
  Receipt Date: 20051110
  Transmission Date: 20060501
  Serious: Yes (Other)
  Sender: FDA-Public Use
  Company Number: 235455K05USA

PATIENT
  Age: 35 Year
  Sex: Female

DRUGS (5)
  1. REBIF [Suspect]
     Indication: MULTIPLE SCLEROSIS
     Dosage: 44 MCG, 3 IN 1 WEEKS,  SUBCUTANEOUS
     Route: 058
     Dates: start: 20040601
  2. NEURONTIN [Concomitant]
  3. TEGRETOL [Concomitant]
  4. DAYPRO [Concomitant]
  5. XANAX [Concomitant]

REACTIONS (7)
  - CONVULSION [None]
  - DRY SKIN [None]
  - ERYTHEMA [None]
  - INJECTION SITE ERYTHEMA [None]
  - INJECTION SITE PRURITUS [None]
  - INJECTION SITE REACTION [None]
  - PRURITUS [None]
